FAERS Safety Report 21168041 (Version 1)
Quarter: 2022Q3

REPORT INFORMATION
  Report Type: Spontaneous
  Country: IE (occurrence: IE)
  Receive Date: 20220803
  Receipt Date: 20220803
  Transmission Date: 20221026
  Serious: Yes (Other)
  Sender: FDA-Public Use
  Company Number: IE-PFIZER INC-202201028825

PATIENT
  Age: 55 Year
  Sex: Female

DRUGS (1)
  1. SOLU-CORTEF [Suspect]
     Active Substance: HYDROCORTISONE SODIUM SUCCINATE
     Dosage: 100 MG
     Route: 041

REACTIONS (5)
  - Anaphylactic shock [Recovering/Resolving]
  - Drug hypersensitivity [Recovering/Resolving]
  - Rash pruritic [Recovering/Resolving]
  - Dyspnoea [Recovering/Resolving]
  - Burning sensation [Recovering/Resolving]
